FAERS Safety Report 6321703-8 (Version None)
Quarter: 2009Q3

REPORT INFORMATION
  Report Type: 
  Country: None (occurrence: None)
  Receive Date: 20090824
  Receipt Date: 20090818
  Transmission Date: 20100115
  Serious: Yes (Hospitalization)
  Sender: FDA-Public Use
  Company Number: AT-EISAI INC.-E2090-00820-SPO-AT

PATIENT
  Age: 41 Year
  Sex: Female
  Weight: 64 kg

DRUGS (2)
  1. ZONEGRAN [Suspect]
     Route: 048
     Dates: start: 20090624, end: 20090801
  2. DEPAKINE CHRONO RETARD [Concomitant]
     Route: 048

REACTIONS (1)
  - THROMBOCYTOPENIA [None]
